FAERS Safety Report 4311592-5 (Version None)
Quarter: 2004Q1

REPORT INFORMATION
  Report Type: 
  Country: None (occurrence: None)
  Receive Date: 20040303
  Receipt Date: 20040303
  Transmission Date: 20041129
  Serious: No
  Sender: FDA-Public Use
  Company Number: None

PATIENT
  Age: 32 Year
  Sex: Female
  Weight: 65.7716 kg

DRUGS (2)
  1. WELLBUTRIN SR [Suspect]
     Indication: DEPRESSION
     Dosage: 1 TWICE A DA ORAL
     Route: 048
     Dates: start: 20031118, end: 20031202
  2. LEXAPRO [Concomitant]

REACTIONS (2)
  - APHASIA [None]
  - VOCAL CORD DISORDER [None]
